FAERS Safety Report 7700343-X (Version None)
Quarter: 2011Q3

REPORT INFORMATION
  Report Type: 
  Country: None (occurrence: None)
  Receive Date: 20110822
  Receipt Date: 20110811
  Transmission Date: 20111222
  Serious: Yes (Hospitalization)
  Sender: FDA-Public Use
  Company Number: PHFR2011GB04772

PATIENT
  Sex: Male

DRUGS (2)
  1. CLOZAPINE [Suspect]
     Indication: SCHIZOPHRENIA
     Dosage: 700 MG, QD
     Route: 048
     Dates: start: 20100420
  2. DIAZEPAM [Concomitant]

REACTIONS (3)
  - OXYGEN SATURATION DECREASED [None]
  - PNEUMONIA [None]
  - LOSS OF CONSCIOUSNESS [None]
